FAERS Safety Report 20542907 (Version 1)
Quarter: 2022Q1

REPORT INFORMATION
  Report Type: Report from Study
  Country: US (occurrence: US)
  Receive Date: 20220302
  Receipt Date: 20220302
  Transmission Date: 20220423
  Serious: Yes (Hospitalization, Other)
  Sender: FDA-Public Use
  Company Number: US-BAYER-2022A006157

PATIENT
  Age: 70 Year
  Sex: Female
  Weight: 68.481 kg

DRUGS (4)
  1. ADEMPAS [Suspect]
     Active Substance: RIOCIGUAT
     Indication: Pulmonary arterial hypertension
     Dosage: UNK
     Dates: start: 20211020
  2. ADEMPAS [Suspect]
     Active Substance: RIOCIGUAT
     Indication: Pulmonary arterial hypertension
     Dosage: 2.5 MG, TID
     Route: 048
  3. ADEMPAS [Suspect]
     Active Substance: RIOCIGUAT
     Indication: Pulmonary arterial hypertension
     Dosage: 2 MG, TID
     Route: 048
  4. REMODULIN [Concomitant]
     Active Substance: TREPROSTINIL

REACTIONS (9)
  - Hypotension [Not Recovered/Not Resolved]
  - Macular degeneration [Not Recovered/Not Resolved]
  - Inflammation [None]
  - Gastric disorder [None]
  - Hypotension [None]
  - Oedema [None]
  - Weight increased [None]
  - Feeling abnormal [None]
  - Dizziness [None]

NARRATIVE: CASE EVENT DATE: 20220117
